FAERS Safety Report 6376056-6 (Version None)
Quarter: 2009Q3

REPORT INFORMATION
  Report Type: 
  Country: None (occurrence: None)
  Receive Date: 20090921
  Receipt Date: 20090910
  Transmission Date: 20100115
  Serious: Yes (Other)
  Sender: FDA-Public Use
  Company Number: 2009AL005996

PATIENT
  Sex: Male

DRUGS (2)
  1. SERTRALINE HYDROCHLORIDE [Suspect]
  2. CLOZARIL [Concomitant]

REACTIONS (1)
  - TACHYCARDIA [None]
